FAERS Safety Report 4732681-7 (Version None)
Quarter: 2005Q3

REPORT INFORMATION
  Report Type: 
  Country: None (occurrence: None)
  Receive Date: 20050801
  Receipt Date: 20050720
  Transmission Date: 20060218
  Serious: Yes (Other)
  Sender: FDA-Public Use
  Company Number: 185723

PATIENT
  Age: 55 Year
  Sex: Female
  Weight: 58.0604 kg

DRUGS (5)
  1. AVONEX [Suspect]
     Indication: MULTIPLE SCLEROSIS
     Dosage: 30 UG;QW; IM
     Route: 030
     Dates: start: 20030801, end: 20030901
  2. AVONEX [Suspect]
     Indication: MULTIPLE SCLEROSIS
     Dosage: 30 UG;QW; IM
     Route: 030
     Dates: start: 20030901, end: 20031101
  3. LIPITOR [Concomitant]
  4. PREMARIN [Concomitant]
  5. ATENOLOL [Concomitant]

REACTIONS (2)
  - BLOOD POTASSIUM INCREASED [None]
  - HEPATIC ENZYME INCREASED [None]
